FAERS Safety Report 7191164-8 (Version None)
Quarter: 2010Q4

REPORT INFORMATION
  Report Type: 
  Country: None (occurrence: None)
  Receive Date: 20101223
  Receipt Date: 20100811
  Transmission Date: 20110411
  Serious: No
  Sender: FDA-Public Use
  Company Number: US-AMGEN-KDL430864

PATIENT

DRUGS (1)
  1. ENBREL [Suspect]
     Indication: ANKYLOSING SPONDYLITIS
     Dosage: 50 MG, QWK
     Route: 058
     Dates: start: 20100801

REACTIONS (6)
  - ASTHENIA [None]
  - FATIGUE [None]
  - MUSCLE SPASMS [None]
  - NAUSEA [None]
  - PYREXIA [None]
  - VOMITING [None]
